FAERS Safety Report 6177113-X (Version None)
Quarter: 2009Q2

REPORT INFORMATION
  Report Type: 
  Country: None (occurrence: None)
  Receive Date: 20090430
  Receipt Date: 20090430
  Transmission Date: 20091009
  Serious: Yes (Disabling)
  Sender: FDA-Public Use
  Company Number: None

PATIENT
  Sex: Female
  Weight: 75 kg

DRUGS (1)
  1. SOLIAN [Suspect]
     Indication: INSOMNIA
     Dosage: 1 TABLET EVERY MORNING
     Dates: start: 20040514, end: 20080401

REACTIONS (11)
  - DISINHIBITION [None]
  - DRUG WITHDRAWAL SYNDROME [None]
  - INCREASED APPETITE [None]
  - INSOMNIA [None]
  - NEOPLASM SKIN [None]
  - NOCTURNAL FEAR [None]
  - SPEECH DISORDER [None]
  - STRESS [None]
  - SUSPICIOUSNESS [None]
  - TENSION [None]
  - WEIGHT INCREASED [None]
